FAERS Safety Report 16642727 (Version 1)
Quarter: 2019Q3

REPORT INFORMATION
  Report Type: Report from Study
  Country: TW (occurrence: TW)
  Receive Date: 20190729
  Receipt Date: 20190729
  Transmission Date: 20191004
  Serious: Yes (Hospitalization)
  Sender: FDA-Public Use
  Company Number: TW-JNJFOC-20190710813

PATIENT
  Age: 71 Year
  Sex: Female
  Weight: 46 kg

DRUGS (1)
  1. SIMPONI [Suspect]
     Active Substance: GOLIMUMAB
     Indication: RHEUMATOID ARTHRITIS
     Route: 058
     Dates: start: 20181107, end: 20190619

REACTIONS (2)
  - B-cell lymphoma [Unknown]
  - Cervical spinal stenosis [Unknown]
